FAERS Safety Report 20767433 (Version 2)
Quarter: 2022Q2

REPORT INFORMATION
  Report Type: Spontaneous
  Country: US (occurrence: US)
  Receive Date: 20220429
  Receipt Date: 20220519
  Transmission Date: 20220721
  Serious: Yes (Other)
  Sender: FDA-Public Use
  Company Number: US-UNITED THERAPEUTICS-UNT-2022-008965

PATIENT
  Sex: Female

DRUGS (2)
  1. REMODULIN [Suspect]
     Active Substance: TREPROSTINIL
     Indication: Pulmonary arterial hypertension
     Dosage: UNK, CONTINUING
     Route: 058
     Dates: start: 20181004
  2. REMODULIN [Suspect]
     Active Substance: TREPROSTINIL
     Dosage: 0.1185 ?G/KG, CONTINUING
     Route: 058

REACTIONS (2)
  - Major depression [Unknown]
  - Mobility decreased [Unknown]
